FAERS Safety Report 6176917-7 (Version None)
Quarter: 2009Q2

REPORT INFORMATION
  Report Type: 
  Country: None (occurrence: None)
  Receive Date: 20090501
  Receipt Date: 20090421
  Transmission Date: 20091009
  Serious: Yes (Hospitalization)
  Sender: FDA-Public Use
  Company Number: NL-AMGEN-US340830

PATIENT
  Age: 74 Year
  Sex: Male

DRUGS (4)
  1. ENBREL [Suspect]
     Indication: PSORIASIS
     Route: 058
     Dates: start: 20080422
  2. METFORMIN HCL [Concomitant]
     Indication: DIABETES MELLITUS
  3. AMLODIPINE [Concomitant]
     Indication: HYPERTENSION
  4. ENALAPRIL [Concomitant]
     Indication: HYPERTENSION

REACTIONS (1)
  - ANGINA UNSTABLE [None]
